FAERS Safety Report 16323800 (Version 1)
Quarter: 2019Q2

REPORT INFORMATION
  Report Type: Spontaneous
  Country: US (occurrence: US)
  Receive Date: 20190517
  Receipt Date: 20190517
  Transmission Date: 20190711
  Serious: Yes (Other)
  Sender: FDA-Public Use
  Company Number: PHEH2019US021034

PATIENT
  Age: 45 Year
  Sex: Male

DRUGS (2)
  1. TASIGNA [Suspect]
     Active Substance: NILOTINIB
     Dosage: 600 MG, QD
     Route: 048
  2. TASIGNA [Suspect]
     Active Substance: NILOTINIB
     Indication: CHRONIC MYELOID LEUKAEMIA
     Dosage: 800 MG, QD
     Route: 048
     Dates: start: 201105

REACTIONS (10)
  - Immunosuppression [Unknown]
  - Hypertension [Unknown]
  - Myocardial infarction [Unknown]
  - Diarrhoea [Unknown]
  - Anaemia [Unknown]
  - Rash [Unknown]
  - Rash papular [Unknown]
  - Productive cough [Unknown]
  - Coronary artery disease [Unknown]
  - Dyslipidaemia [Unknown]

NARRATIVE: CASE EVENT DATE: 2012
